FAERS Safety Report 5627136-1 (Version None)
Quarter: 2008Q1

REPORT INFORMATION
  Report Type: 
  Country: None (occurrence: None)
  Receive Date: 20080212
  Receipt Date: 20080212
  Transmission Date: 20080703
  Serious: Yes (Death)
  Sender: FDA-Public Use
  Company Number: None

PATIENT
  Sex: Male

DRUGS (3)
  1. CLOFARABINE [Suspect]
     Indication: STEM CELL TRANSPLANT
     Dosage: 84MG DAILY IV DRIP
     Route: 041
     Dates: start: 20071221, end: 20071225
  2. MELPHALAN [Suspect]
     Dosage: 294 DAILY IV DRIP
     Route: 041
     Dates: start: 20071226, end: 20071226
  3. CAMPATH [Suspect]
     Indication: STEM CELL TRANSPLANT
     Dosage: 20 MG DAILY IV DRIP
     Route: 041
     Dates: start: 20071221, end: 20071225

REACTIONS (3)
  - ACUTE GRAFT VERSUS HOST DISEASE IN LIVER [None]
  - BLOOD CULTURE POSITIVE [None]
  - GENERAL PHYSICAL HEALTH DETERIORATION [None]
